FAERS Safety Report 9082700 (Version 1)
Quarter: 2013Q1

REPORT INFORMATION
  Report Type: Report from Study
  Country: US (occurrence: US)
  Receive Date: 20130130
  Receipt Date: 20130130
  Transmission Date: 20140127
  Serious: No
  Sender: FDA-Public Use
  Company Number: US-ABBOTT-12P-163-0978483-00

PATIENT
  Age: 69 Year
  Sex: Male

DRUGS (8)
  1. HUMIRA [Suspect]
     Indication: ANKYLOSING SPONDYLITIS
  2. CYMBALTA [Concomitant]
     Indication: SLEEP DISORDER THERAPY
     Dosage: MAXIMUM AMOUNT
  3. FINASTERIDE [Concomitant]
     Indication: BLADDER DISORDER
     Dosage: DAILY
  4. TERAZOSIN [Concomitant]
     Indication: BLADDER DISORDER
     Dosage: MAXIMUM STRENGTH
  5. LISINOPRIL [Concomitant]
     Indication: HYPERTENSION
     Dosage: THE MINIMUM AMOUNT
  6. ASTELIN [Concomitant]
     Indication: NASAL CONGESTION
     Dosage: 2 SPRAYS  EACH NOSTIRL TWICE A DAY
  7. LIALDA [Concomitant]
     Indication: CROHN^S DISEASE
     Dates: start: 201209
  8. LIALDA [Concomitant]
     Dates: end: 201209

REACTIONS (2)
  - Injection site haemorrhage [Not Recovered/Not Resolved]
  - Nasal congestion [Not Recovered/Not Resolved]
